FAERS Safety Report 5495825-8 (Version None)
Quarter: 2007Q4

REPORT INFORMATION
  Report Type: 
  Country: None (occurrence: None)
  Receive Date: 20071025
  Receipt Date: 20061130
  Transmission Date: 20080405
  Serious: No
  Sender: FDA-Public Use
  Company Number: A0625351A

PATIENT
  Age: 76 Year
  Sex: Male
  Weight: 70.5 kg

DRUGS (11)
  1. ADVAIR DISKUS 100/50 [Suspect]
     Indication: EMPHYSEMA
     Route: 055
     Dates: start: 20050101, end: 20060901
  2. CLARINEX [Concomitant]
  3. VERAPAMIL [Concomitant]
  4. TRIAMTERENE [Concomitant]
  5. RANITIDINE HCL [Concomitant]
  6. HYDROCHLOROTHIAZIDE [Concomitant]
  7. DOXYCYCLINE [Concomitant]
  8. MUCINEX [Concomitant]
  9. SYNTHROID [Concomitant]
  10. ASPIRIN [Concomitant]
  11. SPIRIVA [Concomitant]

REACTIONS (2)
  - CHEST PAIN [None]
  - DYSPHONIA [None]
